FAERS Safety Report 4561182-4 (Version None)
Quarter: 2005Q1

REPORT INFORMATION
  Report Type: 
  Country: None (occurrence: None)
  Receive Date: 20050121
  Receipt Date: 20050107
  Transmission Date: 20050727
  Serious: Yes (Life-Threatening, Hospitalization)
  Sender: FDA-Public Use
  Company Number: 2005SP000006

PATIENT
  Age: 11 Month
  Sex: Male
  Weight: 21 kg

DRUGS (5)
  1. XOPENEX [Suspect]
     Indication: OBSTRUCTIVE AIRWAYS DISORDER
     Dosage: 0.63 MG/3ML; INHALATION
     Route: 055
     Dates: start: 20041123, end: 20041123
  2. TYLENOL [Concomitant]
  3. ORAPRED [Concomitant]
  4. DECADRON [Concomitant]
  5. EPINEPHRINE [Concomitant]

REACTIONS (4)
  - DRUG INEFFECTIVE [None]
  - HEART RATE INCREASED [None]
  - OBSTRUCTIVE AIRWAYS DISORDER [None]
  - OXYGEN SATURATION DECREASED [None]
